FAERS Safety Report 8428249-1 (Version None)
Quarter: 2012Q2

REPORT INFORMATION
  Report Type: 
  Country: None (occurrence: None)
  Receive Date: 20120611
  Receipt Date: 20110822
  Transmission Date: 20120825
  Serious: No
  Sender: FDA-Public Use
  Company Number: US-ASTRAZENECA-2011SE35457

PATIENT
  Age: 83 Year
  Sex: Male
  Weight: 62.6 kg

DRUGS (7)
  1. DIOVAN [Concomitant]
  2. PULMICORT FLEXHALER [Suspect]
     Indication: ASTHMA
     Route: 055
     Dates: start: 20080101, end: 20080101
  3. PULMICORT FLEXHALER [Suspect]
     Route: 055
     Dates: start: 20101001
  4. PULMICORT FLEXHALER [Suspect]
     Route: 055
     Dates: start: 20110501
  5. RED RICE YEAST [Concomitant]
     Indication: BLOOD TRIGLYCERIDES ABNORMAL
  6. RED RICE YEAST [Concomitant]
     Indication: BLOOD CHOLESTEROL ABNORMAL
  7. LIPITOR [Concomitant]
     Indication: BLOOD CHOLESTEROL ABNORMAL

REACTIONS (4)
  - COUGH [None]
  - DRUG DOSE OMISSION [None]
  - INCREASED UPPER AIRWAY SECRETION [None]
  - GLAUCOMA [None]
